FAERS Safety Report 6025432-X (Version None)
Quarter: 2008Q4

REPORT INFORMATION
  Report Type: 
  Country: None (occurrence: None)
  Receive Date: 20081229
  Receipt Date: 20081229
  Transmission Date: 20090506
  Serious: No
  Sender: FDA-Public Use
  Company Number: None

PATIENT
  Age: 56 Year
  Sex: Female
  Weight: 97.5234 kg

DRUGS (8)
  1. AMBIEN [Suspect]
     Indication: ANXIETY
     Dosage: 1/2 TAB PRN PO
     Route: 048
     Dates: start: 19970101, end: 20050101
  2. AMBIEN [Suspect]
     Indication: DEPRESSION
     Dosage: 1/2 TAB PRN PO
     Route: 048
     Dates: start: 19970101, end: 20050101
  3. AMBIEN [Suspect]
     Indication: INSOMNIA
     Dosage: 1/2 TAB PRN PO
     Route: 048
     Dates: start: 19970101, end: 20050101
  4. WELLBUTRIN [Concomitant]
  5. ARMOUR [Concomitant]
  6. THYROID TAB [Concomitant]
  7. LAMICTAL [Concomitant]
  8. EFFEXOR [Concomitant]

REACTIONS (4)
  - ALTERED STATE OF CONSCIOUSNESS [None]
  - AMNESIA [None]
  - DIZZINESS POSTURAL [None]
  - SOMNOLENCE [None]
